FAERS Safety Report 6571058-9 (Version None)
Quarter: 2010Q1

REPORT INFORMATION
  Report Type: 
  Country: None (occurrence: None)
  Receive Date: 20100204
  Receipt Date: 20100201
  Transmission Date: 20100710
  Serious: Yes (Death)
  Sender: FDA-Public Use
  Company Number: US-MEDIMMUNE-MEDI-0010400

PATIENT

DRUGS (1)
  1. SYNAGIS [Suspect]
     Dates: start: 20091209, end: 20100105

REACTIONS (1)
  - SUDDEN INFANT DEATH SYNDROME [None]
